FAERS Safety Report 4595707-X (Version None)
Quarter: 2005Q1

REPORT INFORMATION
  Report Type: 
  Country: None (occurrence: None)
  Receive Date: 20050224
  Receipt Date: 20050211
  Transmission Date: 20050727
  Serious: Yes (Hospitalization, Other)
  Sender: FDA-Public Use
  Company Number: 2005029150

PATIENT
  Age: 39 Year
  Sex: Female

DRUGS (6)
  1. CELEBRA (CELECOXIB) [Suspect]
     Indication: FIBROMYALGIA
     Dosage: 200 MG (200 MG 1 IN 1 D) ORAL
     Route: 048
     Dates: start: 20001031
  2. METOPROLOL TARTRATE [Concomitant]
  3. NITROGLYCERIN [Concomitant]
  4. SIMVASTATIN [Concomitant]
  5. ASPIRIN [Concomitant]
  6. OMEPRAZOLE [Concomitant]

REACTIONS (5)
  - ARTERIAL INJURY [None]
  - CORONARY ARTERY DISEASE [None]
  - ELECTROCARDIOGRAM T WAVE INVERSION [None]
  - FALL [None]
  - MYOCARDIAL INFARCTION [None]
